FAERS Safety Report 6578994-8 (Version None)
Quarter: 2010Q1

REPORT INFORMATION
  Report Type: 
  Country: None (occurrence: None)
  Receive Date: 20100212
  Receipt Date: 20100205
  Transmission Date: 20100710
  Serious: Yes (Hospitalization)
  Sender: FDA-Public Use
  Company Number: DE-TEVA-223552ISR

PATIENT
  Sex: Male
  Weight: 70.5 kg

DRUGS (2)
  1. GEMCITABINE [Suspect]
     Indication: LUNG ADENOCARCINOMA
     Dosage: 1700 MG PER WEEK
     Route: 042
     Dates: start: 20100113, end: 20100120
  2. GEMCITABINE [Concomitant]

REACTIONS (2)
  - FEBRILE INFECTION [None]
  - PNEUMONIA [None]
